FAERS Safety Report 9351398 (Version 1)
Quarter: 2013Q2

REPORT INFORMATION
  Report Type: Spontaneous
  Country: US (occurrence: US)
  Receive Date: 20130617
  Receipt Date: 20130617
  Transmission Date: 20140414
  Serious: No
  Sender: FDA-Public Use
  Company Number: US-UPSHER-SMITH LABORATORIES, INC.-13001774

PATIENT
  Age: 11 Year
  Sex: Female

DRUGS (3)
  1. DIVALPROEX SODIUM [Suspect]
     Indication: EPILEPSY
     Dosage: 2 TABS IN AM, 4 TABS IN PM
     Route: 048
     Dates: start: 201202
  2. LAMICTAL [Concomitant]
     Indication: EPILEPSY
     Dosage: UNK
  3. CENTRUM SILVER                     /01292501/ [Concomitant]
     Dosage: UNK

REACTIONS (5)
  - Tremor [Not Recovered/Not Resolved]
  - Memory impairment [Not Recovered/Not Resolved]
  - Alopecia [Not Recovered/Not Resolved]
  - Hair colour changes [Not Recovered/Not Resolved]
  - Hair texture abnormal [Not Recovered/Not Resolved]
